FAERS Safety Report 9696255 (Version 1)
Quarter: 2013Q4

REPORT INFORMATION
  Report Type: Spontaneous
  Country: US (occurrence: None)
  Receive Date: 20131115
  Receipt Date: 20131115
  Transmission Date: 20140711
  Serious: Yes (Other)
  Sender: FDA-Public Use
  Company Number: SYM-2013-12489

PATIENT
  Sex: 0

DRUGS (5)
  1. FLUOROURACIL (FLUOROURACIL) (FLUOROURACIL) [Suspect]
     Indication: COLORECTAL CANCER METASTATIC
  2. OXALIPLATIN (OXALIPLATIN) (OXALIPLATIN) [Suspect]
     Indication: COLORECTAL CANCER METASTATIC
  3. LEUCOVORIN (FOLINIC ACID) (FOLINIC ACID) [Suspect]
     Indication: COLORECTAL CANCER METASTATIC
  4. DEXAMETHASONE (DEXAMETHASONE) (DEXAMETHASONE) [Concomitant]
  5. ONDANSETRON (ONDANSETRON) (ONDANSETRON) [Concomitant]

REACTIONS (1)
  - Mucosal inflammation [None]
